FAERS Safety Report 9644893 (Version 2)
Quarter: 2013Q4

REPORT INFORMATION
  Report Type: Report from Study
  Country: FR (occurrence: FR)
  Receive Date: 20131025
  Receipt Date: 20131025
  Transmission Date: 20140711
  Serious: Yes (Hospitalization)
  Sender: FDA-Public Use
  Company Number: PHHO2013FR011925

PATIENT
  Age: 36 Year
  Sex: Male
  Weight: 80.23 kg

DRUGS (18)
  1. ZOLEDRONATE [Suspect]
     Indication: OSTEOSARCOMA
     Dosage: 4 MG, CUMULATIVE DOSE 8 MG
     Route: 042
     Dates: start: 20130622, end: 20130720
  2. ADRIAMYCIN [Suspect]
     Indication: OSTEOSARCOMA
     Dosage: 120 MG, CUMULATIVE DOSE 360 MG
     Route: 042
     Dates: start: 20130618, end: 20130731
  3. CISPLATIN [Suspect]
     Indication: OSTEOSARCOMA
     Dosage: 200 MG, CUMULATIVE DOSE 400 MG
     Route: 042
     Dates: start: 20130618, end: 20130731
  4. IFOSFAMIDE [Suspect]
     Indication: OSTEOSARCOMA
     Dosage: 1200 MG, CUMULATIVE DOSE 36000 MG
     Route: 042
     Dates: start: 20130620, end: 20130802
  5. DEROXAT [Concomitant]
     Dosage: UNK
     Route: 048
     Dates: start: 20130909
  6. PERFALGAN [Concomitant]
     Dosage: UNK
     Route: 042
     Dates: start: 20130907, end: 20130907
  7. PRIMPERAN [Concomitant]
     Indication: NAUSEA
     Dosage: UNK
     Route: 042
     Dates: start: 20130901, end: 20130907
  8. ONDANSETRON [Concomitant]
     Indication: NAUSEA
     Route: 042
     Dates: start: 20130907, end: 20130907
  9. LARGACTIL [Concomitant]
     Indication: NAUSEA
     Route: 042
     Dates: start: 20130805, end: 20130906
  10. ZOFRAN [Concomitant]
     Indication: NAUSEA
     Dosage: UNK
     Route: 042
     Dates: start: 20130731
  11. CALCIUM [Concomitant]
     Indication: PROPHYLAXIS
     Dosage: UNK
     Route: 048
     Dates: start: 20130622
  12. SODIUM BICARBONATE [Concomitant]
     Indication: PROPHYLAXIS
     Dosage: MOUTHWASH
     Dates: start: 20130619
  13. IMOVANE [Concomitant]
     Indication: INSOMNIA
     Route: 048
     Dates: start: 20130620
  14. LYSANXIA [Concomitant]
     Indication: ANXIETY
     Dates: start: 20130831
  15. GRANOCYTE [Concomitant]
     Indication: NEUTROPENIA
     Route: 058
     Dates: start: 20130805, end: 20130813
  16. GRANOCYTE [Concomitant]
     Dates: start: 20130830, end: 20130908
  17. PLITICAN [Concomitant]
     Indication: NAUSEA
     Route: 042
     Dates: start: 20130731
  18. PLITICAN [Concomitant]
     Route: 042
     Dates: start: 20130814, end: 20130907

REACTIONS (2)
  - Ecthyma [Recovered/Resolved]
  - Staphylococcal infection [Recovered/Resolved]
